FAERS Safety Report 16168630 (Version 1)
Quarter: 2019Q2

REPORT INFORMATION
  Report Type: Spontaneous
  Country: US (occurrence: US)
  Receive Date: 20190405
  Receipt Date: 20190405
  Transmission Date: 20190711
  Serious: Yes (Death)
  Sender: FDA-Public Use
  Company Number: None

PATIENT
  Age: 86 Year

DRUGS (9)
  1. TORSEMIDE. [Concomitant]
     Active Substance: TORSEMIDE
  2. POTASSIUM CHLORIDE. [Concomitant]
     Active Substance: POTASSIUM CHLORIDE
  3. BUMETANIDE. [Concomitant]
     Active Substance: BUMETANIDE
  4. ATORVASTATIN [Concomitant]
     Active Substance: ATORVASTATIN
  5. ALLOPURINOL. [Concomitant]
     Active Substance: ALLOPURINOL
  6. LATANOPROST. [Concomitant]
     Active Substance: LATANOPROST
  7. ALENDRONATE [Concomitant]
     Active Substance: ALENDRONATE SODIUM
  8. DOFETILIDE. [Suspect]
     Active Substance: DOFETILIDE
     Indication: CARDIAC FAILURE
     Route: 048
     Dates: start: 20180615
  9. PANTOPRAZOLE [Concomitant]
     Active Substance: PANTOPRAZOLE

REACTIONS (1)
  - Death [None]

NARRATIVE: CASE EVENT DATE: 20190308
